FAERS Safety Report 22697592 (Version 3)
Quarter: 2023Q4

REPORT INFORMATION
  Report Type: Spontaneous
  Country: SI (occurrence: SI)
  Receive Date: 20230712
  Receipt Date: 20231009
  Transmission Date: 20240110
  Serious: Yes (Other)
  Sender: FDA-Public Use
  Company Number: SI-BAYER-2023A095621

PATIENT
  Age: 60 Year
  Sex: Female

DRUGS (1)
  1. ULTRAVIST [Suspect]
     Active Substance: IOPROMIDE
     Indication: Computerised tomogram
     Dosage: UNK, ONCE
     Dates: start: 20230705, end: 20230705

REACTIONS (8)
  - Vein rupture [Recovered/Resolved]
  - Thrombosis [Recovering/Resolving]
  - Injection site swelling [Recovered/Resolved]
  - Peripheral swelling [Recovered/Resolved]
  - Injection site warmth [Recovered/Resolved]
  - Dyspnoea exertional [Recovering/Resolving]
  - Malaise [None]
  - Dizziness [None]

NARRATIVE: CASE EVENT DATE: 20230701
